FAERS Safety Report 6191294-3 (Version None)
Quarter: 2009Q2

REPORT INFORMATION
  Report Type: 
  Country: None (occurrence: None)
  Receive Date: 20090515
  Receipt Date: 20090506
  Transmission Date: 20091009
  Serious: Yes (Hospitalization)
  Sender: FDA-Public Use
  Company Number: US-ABBOTT-09P-163-0571865-00

PATIENT
  Sex: Female
  Weight: 101.24 kg

DRUGS (2)
  1. HUMIRA [Suspect]
     Indication: UVEITIS
     Route: 058
     Dates: start: 20090218, end: 20090415
  2. PREDNISONE [Concomitant]
     Indication: UVEITIS
     Dosage: DAILY

REACTIONS (1)
  - HYPOGLYCAEMIC COMA [None]
